FAERS Safety Report 4842471-2 (Version None)
Quarter: 2005Q4

REPORT INFORMATION
  Report Type: 
  Country: None (occurrence: None)
  Receive Date: 20051129
  Receipt Date: 20051116
  Transmission Date: 20060501
  Serious: Yes (Disabling)
  Sender: FDA-Public Use
  Company Number: 2005121313

PATIENT
  Age: 88 Year
  Sex: Female

DRUGS (11)
  1. LIPITOR [Suspect]
     Indication: ILL-DEFINED DISORDER
     Dates: start: 20021029
  2. NORVASC [Concomitant]
  3. CELEBREX [Concomitant]
  4. HYDROCHLOROTHIAZIDE [Concomitant]
  5. KLOR-CON [Concomitant]
  6. AMBIEN [Concomitant]
  7. SKELAXIN [Concomitant]
  8. ASPIRIN [Concomitant]
  9. ATIVAN [Concomitant]
  10. FOSAMAX [Concomitant]
  11. VICODIN [Concomitant]

REACTIONS (29)
  - ABDOMINAL DISTENSION [None]
  - ANXIETY [None]
  - AORTIC CALCIFICATION [None]
  - AORTIC VALVE INCOMPETENCE [None]
  - ARTHRITIS [None]
  - BURSITIS [None]
  - CARDIAC FAILURE CONGESTIVE [None]
  - CARDIAC MURMUR [None]
  - CHOLELITHIASIS [None]
  - CORONARY ARTERY STENOSIS [None]
  - DRY EYE [None]
  - DYSPNOEA [None]
  - EXTRAVASATION [None]
  - FATIGUE [None]
  - GAIT DISTURBANCE [None]
  - HEPATIC CYST [None]
  - HYPOREFLEXIA [None]
  - INSOMNIA [None]
  - MEDICAL DEVICE COMPLICATION [None]
  - MEMORY IMPAIRMENT [None]
  - MUSCLE SPASMS [None]
  - RENAL HAEMORRHAGE [None]
  - RHEUMATOID ARTHRITIS [None]
  - SCIATICA [None]
  - SPEECH DISORDER [None]
  - SPINAL COMPRESSION FRACTURE [None]
  - SPINAL OSTEOARTHRITIS [None]
  - SPONDYLOLISTHESIS ACQUIRED [None]
  - STRESS [None]
